FAERS Safety Report 10743786 (Version 1)
Quarter: 2015Q1

REPORT INFORMATION
  Report Type: Report from Study
  Country: US (occurrence: US)
  Receive Date: 20150128
  Receipt Date: 20150128
  Transmission Date: 20150721
  Serious: Yes (Hospitalization, Other)
  Sender: FDA-Public Use
  Company Number: US-AMGEN-USASL2015006694

PATIENT
  Age: 6 Year
  Sex: Female

DRUGS (1)
  1. ENBREL [Suspect]
     Active Substance: ETANERCEPT
     Indication: JUVENILE IDIOPATHIC ARTHRITIS
     Dosage: 25 MG, QWK
     Route: 065
     Dates: start: 20111122

REACTIONS (8)
  - Pain [Recovered/Resolved]
  - Blood urine present [Recovered/Resolved]
  - Benign neoplasm [Recovered/Resolved]
  - Gait disturbance [Recovered/Resolved]
  - Urinary retention [Recovered/Resolved]
  - Juvenile idiopathic arthritis [Recovered/Resolved]
  - Conversion disorder [Recovered/Resolved]
  - Fall [Recovered/Resolved]
